FAERS Safety Report 11858648 (Version 1)
Quarter: 2015Q4

REPORT INFORMATION
  Report Type: Spontaneous
  Country: GB (occurrence: GB)
  Receive Date: 20151222
  Receipt Date: 20151222
  Transmission Date: 20160305
  Serious: Yes (Disabling, Other)
  Sender: FDA-Public Use
  Company Number: GB-ACCORD-036305

PATIENT
  Age: 55 Year
  Sex: Female
  Weight: 81.64 kg

DRUGS (3)
  1. CAPECITABINE. [Suspect]
     Active Substance: CAPECITABINE
     Indication: BONE CANCER METASTATIC
     Route: 048
     Dates: start: 20150820
  2. PYRIDOXINE [Concomitant]
     Active Substance: PYRIDOXINE
  3. LETROZOLE. [Concomitant]
     Active Substance: LETROZOLE

REACTIONS (5)
  - Burning sensation [Unknown]
  - Gait disturbance [Recovering/Resolving]
  - Neuropathy peripheral [Unknown]
  - Pain in extremity [Recovering/Resolving]
  - Off label use [Unknown]

NARRATIVE: CASE EVENT DATE: 20151116
